FAERS Safety Report 7852321-8 (Version None)
Quarter: 2011Q4

REPORT INFORMATION
  Report Type: 
  Country: None (occurrence: None)
  Receive Date: 20111026
  Receipt Date: 20111023
  Transmission Date: 20120403
  Serious: No
  Sender: FDA-Public Use
  Company Number: US-TEVA-306459USA

PATIENT
  Sex: Female
  Weight: 59.02 kg

DRUGS (4)
  1. ZOLOFT [Concomitant]
     Indication: OBSESSIVE-COMPULSIVE DISORDER
  2. VALIUM [Concomitant]
     Indication: ANXIETY DISORDER
  3. ZOLOFT [Concomitant]
     Indication: ANXIETY DISORDER
  4. PLAN B ONE-STEP [Suspect]
     Indication: POST COITAL CONTRACEPTION
     Dosage: 1.5 MILLIGRAM;
     Route: 048
     Dates: start: 20111022, end: 20111022

REACTIONS (1)
  - DIARRHOEA [None]
